FAERS Safety Report 7789656-3 (Version None)
Quarter: 2011Q3

REPORT INFORMATION
  Report Type: 
  Country: None (occurrence: None)
  Receive Date: 20110930
  Receipt Date: 20110919
  Transmission Date: 20111222
  Serious: Yes (Hospitalization)
  Sender: FDA-Public Use
  Company Number: US-BAYER-201038134NA

PATIENT
  Age: 23 Year
  Sex: Female
  Weight: 79.819 kg

DRUGS (7)
  1. NIFEDIPINE [Concomitant]
     Indication: HYPERTENSION
     Dosage: UNK UNK, QD
     Route: 048
  2. NOVOLIN [INSULIN] [Concomitant]
     Indication: DIABETES MELLITUS
     Dosage: UNK UNK, BID
     Route: 058
  3. OXYCODONE HCL AND ACETAMINOPHEN [Concomitant]
     Indication: PROCEDURAL PAIN
     Dosage: UNK UNK, PRN
     Route: 048
  4. IBUPROFEN [Concomitant]
     Indication: DISCOMFORT
     Dosage: 600 MG, PRN
     Route: 048
  5. LEVAQUIN [Concomitant]
     Indication: DEVICE RELATED SEPSIS
  6. YASMIN [Suspect]
     Indication: CONTRACEPTION
     Dosage: UNK UNK, QD
     Route: 048
     Dates: start: 20040901, end: 20061101
  7. NOVOLOG [Concomitant]
     Indication: DIABETES MELLITUS
     Route: 058

REACTIONS (2)
  - PULMONARY EMBOLISM [None]
  - DEEP VEIN THROMBOSIS [None]
